FAERS Safety Report 10455408 (Version 1)
Quarter: 2014Q3

REPORT INFORMATION
  Report Type: Spontaneous
  Country: US (occurrence: None)
  Receive Date: 20140915
  Receipt Date: 20140915
  Transmission Date: 20150326
  Serious: Yes (Other)
  Sender: FDA-Public Use
  Company Number: None

PATIENT
  Age: 50 Year
  Sex: Female
  Weight: 102.06 kg

DRUGS (1)
  1. VESICARE [Suspect]
     Active Substance: SOLIFENACIN SUCCINATE
     Indication: HYPERTONIC BLADDER
     Route: 048
     Dates: start: 20140904, end: 20140911

REACTIONS (8)
  - Joint effusion [None]
  - Myalgia [None]
  - Influenza like illness [None]
  - Swelling [None]
  - Gait disturbance [None]
  - Chills [None]
  - Arthralgia [None]
  - Peripheral swelling [None]

NARRATIVE: CASE EVENT DATE: 20140913
